FAERS Safety Report 23600927 (Version 3)
Quarter: 2025Q4

REPORT INFORMATION
  Report Type: Spontaneous
  Country: EU (occurrence: EU)
  Receive Date: 20240306
  Receipt Date: 20251201
  Transmission Date: 20260117
  Serious: Yes (Death, Hospitalization, Other)
  Sender: SANDOZ
  Company Number: None

PATIENT
  Age: 42 Year
  Sex: Male
  Weight: 62 kg

DRUGS (18)
  1. ISONIAZID [Suspect]
     Active Substance: ISONIAZID
     Indication: Antibiotic prophylaxis
     Dosage: UNK
     Route: 065
  2. RIFAMPIN [Suspect]
     Active Substance: RIFAMPIN
     Indication: Antibiotic prophylaxis
     Dosage: 2 DOSAGE FORM, QD
     Route: 065
     Dates: start: 20220714, end: 20221015
  3. INFLIXIMAB [Suspect]
     Active Substance: INFLIXIMAB
     Indication: Weight decreased
     Dosage: 300 MG
     Route: 042
     Dates: start: 20220708
  4. INFLIXIMAB [Suspect]
     Active Substance: INFLIXIMAB
     Indication: Abdominal pain upper
  5. INFLIXIMAB [Suspect]
     Active Substance: INFLIXIMAB
     Indication: Diarrhoea
  6. MEDROL [Concomitant]
     Active Substance: METHYLPREDNISOLONE
     Dosage: 16 MG
     Route: 065
     Dates: start: 20220722, end: 20220726
  7. MEDROL [Concomitant]
     Active Substance: METHYLPREDNISOLONE
     Dosage: 24 MG
     Route: 065
     Dates: start: 20220717, end: 20220721
  8. MEDROL [Concomitant]
     Active Substance: METHYLPREDNISOLONE
     Dosage: 32 MG
     Route: 048
     Dates: start: 20220713, end: 20220716
  9. MEDROL [Concomitant]
     Active Substance: METHYLPREDNISOLONE
     Dosage: 4 MG
     Route: 065
     Dates: end: 202305
  10. MEDROL [Concomitant]
     Active Substance: METHYLPREDNISOLONE
     Dosage: 48 MG, OTHER (32 MG IN THE MORNING + 16 MG IN THE EVENING)
     Route: 065
     Dates: start: 202305
  11. MEDROL [Concomitant]
     Active Substance: METHYLPREDNISOLONE
     Indication: Metastases to central nervous system
     Dosage: 8 MG
     Route: 065
     Dates: start: 20220727
  12. CHOLECALCIFEROL [Concomitant]
     Active Substance: CHOLECALCIFEROL
     Indication: Product used for unknown indication
     Dosage: 35 DRP (ON WEDNESDAYS)
     Route: 065
  13. ISONIAZID\RIFAMPIN [Concomitant]
     Active Substance: ISONIAZID\RIFAMPIN
     Indication: Antibiotic prophylaxis
     Dosage: 2 DOSAGE FORM, QD
     Route: 065
     Dates: start: 20220714, end: 20221015
  14. SOLU-MEDROL [Concomitant]
     Active Substance: METHYLPREDNISOLONE SODIUM SUCCINATE
     Indication: Product used for unknown indication
     Dosage: 125 MG, QD
     Route: 042
     Dates: start: 20220705, end: 20220713
  15. VITAMIN D [Concomitant]
     Active Substance: VITAMIN D NOS
     Indication: Product used for unknown indication
     Dosage: UNK
     Route: 065
  16. SULFAMETHOXAZOLE\TRIMETHOPRIM [Interacting]
     Active Substance: SULFAMETHOXAZOLE\TRIMETHOPRIM
     Indication: Diarrhoea
     Dosage: 1 DOSAGE FORM (80/400)
     Route: 048
     Dates: start: 20220707
  17. SULFAMETHOXAZOLE\TRIMETHOPRIM [Interacting]
     Active Substance: SULFAMETHOXAZOLE\TRIMETHOPRIM
     Indication: Abdominal pain upper
  18. SULFAMETHOXAZOLE\TRIMETHOPRIM [Interacting]
     Active Substance: SULFAMETHOXAZOLE\TRIMETHOPRIM
     Indication: Weight decreased

REACTIONS (20)
  - Metastases to central nervous system [Fatal]
  - Disease progression [Fatal]
  - Haematochezia [Recovering/Resolving]
  - Enterocolitis [Unknown]
  - Weight decreased [Recovered/Resolved]
  - Inflammatory bowel disease [Unknown]
  - Abdominal pain upper [Recovered/Resolved]
  - Mucous stools [Recovering/Resolving]
  - Asthenia [Unknown]
  - Diarrhoea [Recovered/Resolved]
  - Liver disorder [Unknown]
  - Metastases to soft tissue [Not Recovered/Not Resolved]
  - Aspartate aminotransferase increased [Recovered/Resolved]
  - Alanine aminotransferase increased [Unknown]
  - Drug interaction [Recovered/Resolved]
  - Interferon gamma release assay positive [Unknown]
  - Serum ferritin increased [Unknown]
  - Decreased appetite [Recovered/Resolved]
  - Transferrin decreased [Unknown]
  - Nausea [Unknown]

NARRATIVE: CASE EVENT DATE: 20220701
